FAERS Safety Report 16438134 (Version 6)
Quarter: 2021Q2

REPORT INFORMATION
  Report Type: Report from Study
  Country: KR (occurrence: KR)
  Receive Date: 20190617
  Receipt Date: 20210429
  Transmission Date: 20210716
  Serious: Yes (Hospitalization, Other)
  Sender: FDA-Public Use
  Company Number: KR-IPSEN BIOPHARMACEUTICALS, INC.-2019-07574

PATIENT
  Age: 50 Year
  Sex: Male
  Weight: 49.9 kg

DRUGS (23)
  1. PRUCALOPRIDE SUCCINATE [Concomitant]
     Active Substance: PRUCALOPRIDE SUCCINATE
     Indication: CONSTIPATION
     Dosage: 1 MG, PRN
     Route: 048
     Dates: start: 20190329
  2. ONIVYDE [Suspect]
     Active Substance: IRINOTECAN HYDROCHLORIDE
     Indication: PANCREATIC CARCINOMA METASTATIC
     Dosage: 112 MG, DAILY
     Route: 042
     Dates: start: 20190402, end: 20190402
  3. ONIVYDE [Suspect]
     Active Substance: IRINOTECAN HYDROCHLORIDE
     Dosage: 112 MG, DAILY
     Route: 042
     Dates: start: 20190420, end: 20190420
  4. LEUCOVORIN. [Concomitant]
     Active Substance: LEUCOVORIN
     Dosage: 644 MG, DAILY
     Route: 042
     Dates: start: 20190420, end: 20190420
  5. LEUCOVORIN. [Concomitant]
     Active Substance: LEUCOVORIN
     Dosage: 652 MG, DAILY
     Route: 042
     Dates: start: 20190509, end: 20190509
  6. FLUOROURACIL SODIUM [Concomitant]
     Active Substance: FLUOROURACIL SODIUM
     Indication: PANCREATIC CARCINOMA METASTATIC
     Dosage: 1932 MG, DAILY
     Route: 042
     Dates: start: 20190402, end: 20190404
  7. FLUOROURACIL SODIUM [Concomitant]
     Active Substance: FLUOROURACIL SODIUM
     Dosage: 1956 MG, DAILY
     Route: 042
     Dates: start: 20190509, end: 20190511
  8. ATROPINE SULFATE. [Concomitant]
     Active Substance: ATROPINE SULFATE
     Indication: PREMEDICATION
     Dosage: 0.5 MG, 2 TIMES IN A WEEK
     Route: 058
     Dates: start: 20190223
  9. ONIVYDE [Suspect]
     Active Substance: IRINOTECAN HYDROCHLORIDE
     Dosage: 114 MG, DAILY
     Route: 042
     Dates: start: 20190509, end: 20190509
  10. ULTRACET [Concomitant]
     Active Substance: ACETAMINOPHEN\TRAMADOL HYDROCHLORIDE
     Indication: PAIN
     Dosage: 1 DF, PRN
     Route: 048
     Dates: start: 20181129
  11. DEXAMETHASONE SODIUM SUCCINATE [Concomitant]
     Active Substance: DEXAMETHASONE SODIUM SUCCINATE
     Indication: PREMEDICATION
     Dosage: 10 MG, 2 TIMES IN A WEEK
     Route: 042
     Dates: start: 20190223
  12. PALONOSETRON. [Concomitant]
     Active Substance: PALONOSETRON HYDROCHLORIDE
     Indication: PREMEDICATION
     Dosage: .25 MG, EVERY 2 WEEKS
     Route: 042
     Dates: start: 20190223
  13. FLUOROURACIL SODIUM [Concomitant]
     Active Substance: FLUOROURACIL SODIUM
     Dosage: 1932 MG, DAILY
     Route: 042
     Dates: start: 20190420, end: 20190422
  14. LACTULOSE. [Concomitant]
     Active Substance: LACTULOSE
     Indication: CONSTIPATION
     Dosage: 15 ML, PRN
     Route: 048
     Dates: start: 20190129
  15. LEUCOVORIN. [Concomitant]
     Active Substance: LEUCOVORIN
     Indication: PANCREATIC CARCINOMA METASTATIC
     Dosage: 644 MG, DAILY
     Route: 042
     Dates: start: 20190402, end: 20190402
  16. FLUOROURACIL SODIUM [Concomitant]
     Active Substance: FLUOROURACIL SODIUM
     Dosage: 1872 MG, DAILY
     Route: 042
     Dates: start: 20190526, end: 20190527
  17. TARGIN [Concomitant]
     Active Substance: NALOXONE HYDROCHLORIDE\OXYCODONE HYDROCHLORIDE
     Indication: BACK PAIN
  18. TARGIN [Concomitant]
     Active Substance: NALOXONE HYDROCHLORIDE\OXYCODONE HYDROCHLORIDE
     Indication: ABDOMINAL PAIN
     Dosage: 1 DF, BID
     Route: 048
     Dates: start: 20190529
  19. MAGNESIUM HYDROXIDE. [Concomitant]
     Active Substance: MAGNESIUM HYDROXIDE
     Indication: CONSTIPATION
     Dosage: 500 MG, PRN
     Route: 048
     Dates: start: 20190129
  20. LEUCOVORIN. [Concomitant]
     Active Substance: LEUCOVORIN
     Dosage: 624 MG, DAILY
     Route: 042
     Dates: start: 20190526, end: 20190526
  21. GRANISETRON HYDROCHLORIDE. [Concomitant]
     Active Substance: GRANISETRON HYDROCHLORIDE
     Indication: PROPHYLAXIS OF NAUSEA AND VOMITING
     Dosage: 34.3 MG, PRN
     Route: 062
     Dates: start: 20190314
  22. ONIVYDE [Suspect]
     Active Substance: IRINOTECAN HYDROCHLORIDE
     Dosage: 109.2 MG, DAILY
     Route: 042
     Dates: start: 20190526, end: 20190526
  23. FENTANYL CITRATE. [Concomitant]
     Active Substance: FENTANYL CITRATE
     Indication: BACK PAIN
     Dosage: 100 MCG, PRN
     Route: 048
     Dates: start: 20190401

REACTIONS (2)
  - Supraventricular tachycardia [Recovered/Resolved]
  - Decreased appetite [Recovered/Resolved]

NARRATIVE: CASE EVENT DATE: 20190605
